FAERS Safety Report 19477419 (Version 5)
Quarter: 2023Q1

REPORT INFORMATION
  Report Type: Spontaneous
  Country: US (occurrence: US)
  Receive Date: 20210630
  Receipt Date: 20230119
  Transmission Date: 20230418
  Serious: Yes (Other)
  Sender: FDA-Public Use
  Company Number: US-PFIZER INC-2021634804

PATIENT
  Age: 57 Year
  Sex: Female

DRUGS (26)
  1. XELJANZ [Suspect]
     Active Substance: TOFACITINIB CITRATE
     Indication: Rheumatoid arthritis
     Dosage: 5 MG, 1X/DAY
     Route: 048
     Dates: start: 20210501
  2. XELJANZ [Suspect]
     Active Substance: TOFACITINIB CITRATE
     Indication: Psoriatic arthropathy
  3. ALBUTEROL SULFATE [Concomitant]
     Active Substance: ALBUTEROL SULFATE
     Dosage: UNK
  4. FARXIGA [Concomitant]
     Active Substance: DAPAGLIFLOZIN PROPANEDIOL
     Dosage: UNK
  5. FUROSEMIDE [Concomitant]
     Active Substance: FUROSEMIDE
     Dosage: UNK
  6. LEVOTHYROXINE [Concomitant]
     Active Substance: LEVOTHYROXINE
     Dosage: UNK
  7. METHYLPHENIDATE [Concomitant]
     Active Substance: METHYLPHENIDATE
     Dosage: UNK
  8. METOPROLOL [Concomitant]
     Active Substance: METOPROLOL
     Dosage: UNK
  9. MODAFINIL [Concomitant]
     Active Substance: MODAFINIL
     Dosage: UNK
  10. ONDANSETRON [Concomitant]
     Active Substance: ONDANSETRON
     Dosage: UNK
  11. OZEMPIC [Concomitant]
     Active Substance: SEMAGLUTIDE
     Dosage: UNK
  12. ROSUVASTATIN [Concomitant]
     Active Substance: ROSUVASTATIN
     Dosage: UNK
  13. VITAMIN B [Concomitant]
     Active Substance: VITAMIN B
     Dosage: UNK
  14. VITAMIN D2 [Concomitant]
     Active Substance: ERGOCALCIFEROL
     Dosage: UNK
  15. SYNTHROID [Concomitant]
     Active Substance: LEVOTHYROXINE SODIUM
     Dosage: UNK
  16. LANTUS [Concomitant]
     Active Substance: INSULIN GLARGINE
     Dosage: UNK
  17. RYBELSUS [Concomitant]
     Active Substance: SEMAGLUTIDE
     Dosage: UNK
  18. METOPROLOL SUCCINATE [Concomitant]
     Active Substance: METOPROLOL SUCCINATE
     Dosage: UNK
  19. HYDROCORTISONE [Concomitant]
     Active Substance: HYDROCORTISONE
     Dosage: UNK
  20. LASIX [Concomitant]
     Active Substance: FUROSEMIDE
     Dosage: UNK
  21. POTASSIUM [Concomitant]
     Active Substance: POTASSIUM
     Dosage: UNK
  22. CHOLECALCIFEROL [Concomitant]
     Active Substance: CHOLECALCIFEROL
     Dosage: UNK
  23. VITAMIN B12 [Concomitant]
     Active Substance: CYANOCOBALAMIN
     Dosage: UNK
  24. MAGNESIUM [Concomitant]
     Active Substance: MAGNESIUM
     Dosage: UNK
  25. ZOMIG [Concomitant]
     Active Substance: ZOLMITRIPTAN
     Dosage: UNK
  26. ASMANEX [Concomitant]
     Active Substance: MOMETASONE FUROATE
     Dosage: UNK

REACTIONS (17)
  - COVID-19 [Recovered/Resolved]
  - Pancreatitis [Recovered/Resolved]
  - Infection [Recovered/Resolved]
  - Pneumonia [Recovered/Resolved]
  - Fractured coccyx [Unknown]
  - Fall [Unknown]
  - Respiratory syncytial virus infection [Unknown]
  - Vertigo [Not Recovered/Not Resolved]
  - Headache [Not Recovered/Not Resolved]
  - Bone pain [Not Recovered/Not Resolved]
  - Pain in jaw [Unknown]
  - Toothache [Unknown]
  - Condition aggravated [Not Recovered/Not Resolved]
  - Off label use [Unknown]
  - Malaise [Unknown]
  - Product dose omission issue [Unknown]
  - Pain [Unknown]

NARRATIVE: CASE EVENT DATE: 20210501
